FAERS Safety Report 9694131 (Version 2)
Quarter: 2016Q1

REPORT INFORMATION
  Report Type: Spontaneous
  Country: DK (occurrence: DK)
  Receive Date: 20131118
  Receipt Date: 20160203
  Transmission Date: 20160526
  Serious: Yes (Other)
  Sender: FDA-Public Use
  Company Number: DK-ACTAVIS-2013-21159

PATIENT
  Sex: Female

DRUGS (7)
  1. EPIRUBICIN (UNKNOWN) [Suspect]
     Active Substance: EPIRUBICIN
     Indication: BREAST CANCER
     Dosage: 90 MG/M2, UNKNOWN (GIVEN 3 TIMES. GIVEN THE SECOND TIME ON 29/AUG/2008)
     Route: 042
     Dates: start: 20080808, end: 20080922
  2. ARIMIDEX [Concomitant]
     Active Substance: ANASTROZOLE
     Indication: PRODUCT USED FOR UNKNOWN INDICATION
     Dosage: 1 MG, DAILY
     Route: 065
     Dates: end: 20090415
  3. CENTYL MED KALIUMKLORID [Concomitant]
     Active Substance: BENDROFLUMETHIAZIDE\POTASSIUM CHLORIDE
     Indication: PRODUCT USED FOR UNKNOWN INDICATION
     Dosage: 1 DF, DAILY
     Route: 048
  4. CYCLOPHOSPHAMIDE (UNKNOWN) [Suspect]
     Active Substance: CYCLOPHOSPHAMIDE
     Indication: BREAST CANCER
     Dosage: 600 MG/M2, UNKNOWN (GIVEN 3 TIMES. GIVEN THE SECOND TIME ON 29/AUG/2008)
     Route: 042
     Dates: start: 20080808, end: 20080922
  5. IBUMETIN [Concomitant]
     Active Substance: IBUPROFEN
     Indication: PRODUCT USED FOR UNKNOWN INDICATION
     Dosage: PRN (IF NECESSARY : 200 MG)
     Route: 048
  6. TAXOTERE [Suspect]
     Active Substance: DOCETAXEL
     Indication: PRODUCT USED FOR UNKNOWN INDICATION
     Dosage: UNK, DOSE NOT AVAILABLE. GIVEN 3 TIMES, THE SECOND TIME ON 7/NOV/2008
     Route: 042
     Dates: start: 20081017, end: 20081128
  7. METHOTREXATE [Concomitant]
     Active Substance: METHOTREXATE
     Indication: PSORIATIC ARTHROPATHY
     Dosage: UNK (NOT REAL TREATMENT)
     Route: 065

REACTIONS (12)
  - Mental disorder [Unknown]
  - Paraesthesia [Unknown]
  - Lymphoedema [Recovered/Resolved]
  - Arthralgia [Unknown]
  - Muscular weakness [Unknown]
  - Insomnia [Unknown]
  - Myalgia [Unknown]
  - Fatigue [Recovered/Resolved]
  - Periodontitis [Unknown]
  - Disturbance in attention [Unknown]
  - Psoriasis [Unknown]
  - Memory impairment [Unknown]

NARRATIVE: CASE EVENT DATE: 2008
